FAERS Safety Report 10040348 (Version 2)
Quarter: 2014Q2

REPORT INFORMATION
  Report Type: Spontaneous
  Country: US (occurrence: US)
  Receive Date: 20140327
  Receipt Date: 20140401
  Transmission Date: 20141212
  Serious: No
  Sender: FDA-Public Use
  Company Number: US-BIOGENIDEC-2014BI027242

PATIENT
  Age: 43 Year
  Sex: Female
  Weight: 52 kg

DRUGS (12)
  1. AVONEX [Suspect]
     Indication: RELAPSING-REMITTING MULTIPLE SCLEROSIS
     Route: 030
     Dates: start: 20100401
  2. AVONEX [Suspect]
     Indication: RELAPSING-REMITTING MULTIPLE SCLEROSIS
     Route: 030
     Dates: start: 20100423, end: 20121115
  3. AVONEX [Suspect]
     Indication: RELAPSING-REMITTING MULTIPLE SCLEROSIS
     Route: 030
     Dates: start: 20130208
  4. GILENYA [Concomitant]
     Route: 048
     Dates: start: 20130827
  5. VITAMIN B-12 [Concomitant]
     Route: 048
  6. ADVIL [Concomitant]
     Route: 048
  7. VITAMIN D-3 [Concomitant]
     Route: 048
  8. AUBAGIO [Concomitant]
     Dates: start: 201211, end: 20121217
  9. PREDNISONE [Concomitant]
     Dates: start: 201210
  10. PREVACID [Concomitant]
     Route: 048
  11. QUASENSE [Concomitant]
     Route: 048
  12. QUASENSE [Concomitant]
     Route: 048

REACTIONS (5)
  - Influenza [Recovered/Resolved]
  - Multiple sclerosis relapse [Recovered/Resolved]
  - Drug ineffective [Unknown]
  - Pain in extremity [Unknown]
  - Musculoskeletal chest pain [Recovered/Resolved]
